FAERS Safety Report 16526436 (Version 1)
Quarter: 2019Q3

REPORT INFORMATION
  Report Type: Spontaneous
  Country: US (occurrence: US)
  Receive Date: 20190523
  Receipt Date: 20190523
  Transmission Date: 20191004
  Serious: No
  Sender: FDA-Public Use
  Company Number: None

PATIENT
  Age: 63 Year
  Sex: Male

DRUGS (1)
  1. ABACAVIR TAB 300MG [Suspect]
     Active Substance: ABACAVIR
     Indication: HEPATITIS B
     Dates: start: 2016

REACTIONS (1)
  - Off label use [None]

NARRATIVE: CASE EVENT DATE: 20190523
